FAERS Safety Report 25149869 (Version 1)
Quarter: 2025Q2

REPORT INFORMATION
  Report Type: Report from Study
  Country: BE (occurrence: BE)
  Receive Date: 20250402
  Receipt Date: 20250402
  Transmission Date: 20250716
  Serious: Yes (Other)
  Sender: Haleon PLC
  Company Number: BE-HALEON-2169430

PATIENT
  Age: 48 Year

DRUGS (1)
  1. DICLOFENAC [Suspect]
     Active Substance: DICLOFENAC
     Indication: Product used for unknown indication

REACTIONS (5)
  - Anaphylactic reaction [Unknown]
  - Dizziness [Unknown]
  - Pruritus [Unknown]
  - Abdominal pain [Unknown]
  - Diarrhoea [Unknown]
